FAERS Safety Report 23445477 (Version 4)
Quarter: 2024Q2

REPORT INFORMATION
  Report Type: Report from Study
  Country: US (occurrence: US)
  Receive Date: 20240126
  Receipt Date: 20240530
  Transmission Date: 20240716
  Serious: Yes (Hospitalization, Other)
  Sender: FDA-Public Use
  Company Number: US-ABBVIE-5599768

PATIENT
  Sex: Male

DRUGS (3)
  1. VENCLEXTA [Suspect]
     Active Substance: VENETOCLAX
     Indication: Colon cancer
     Route: 048
     Dates: start: 202311, end: 202311
  2. VENCLEXTA [Suspect]
     Active Substance: VENETOCLAX
     Indication: Colon cancer
     Route: 048
     Dates: start: 202311
  3. VENCLEXTA [Suspect]
     Active Substance: VENETOCLAX
     Indication: Colon cancer
     Route: 048

REACTIONS (5)
  - Haemoglobin abnormal [Unknown]
  - Fall [Unknown]
  - Full blood count decreased [Unknown]
  - Illness [Unknown]
  - Fatigue [Unknown]
